FAERS Safety Report 4422351-7 (Version None)
Quarter: 2004Q3

REPORT INFORMATION
  Report Type: 
  Country: None (occurrence: None)
  Receive Date: 20040804
  Receipt Date: 20040713
  Transmission Date: 20050211
  Serious: Yes (Hospitalization, Other)
  Sender: FDA-Public Use
  Company Number: US_030796258

PATIENT
  Age: 42 Year
  Sex: Female
  Weight: 130 kg

DRUGS (9)
  1. HUMALOG [Suspect]
     Indication: DIABETES MELLITUS
     Dosage: 48 U AT NOON
     Dates: start: 20030805
  2. HUMULIN N [Suspect]
     Indication: DIABETES MELLITUS
     Dosage: 55 U/D
     Dates: start: 19990101
  3. HUMULIN R [Suspect]
     Indication: DIABETES MELLITUS
     Dosage: 30 U DAY
     Dates: start: 19990101, end: 20030805
  4. NOVOLIN N [Concomitant]
  5. NOVOLIN R [Concomitant]
  6. METFORMIN HCL [Concomitant]
  7. POTASSIUM CHLORIDE [Concomitant]
  8. MULTI-VITAMIN [Concomitant]
  9. MEDROXYPROGESTERONE ACETATE [Concomitant]

REACTIONS (17)
  - BLOOD GLUCOSE DECREASED [None]
  - BLOOD GLUCOSE INCREASED [None]
  - BREAST CYST [None]
  - CATARACT [None]
  - COUGH [None]
  - DIABETES MELLITUS INADEQUATE CONTROL [None]
  - EYE DISORDER [None]
  - FEELING ABNORMAL [None]
  - FLUID RETENTION [None]
  - IMPAIRED DRIVING ABILITY [None]
  - INJECTION SITE PAIN [None]
  - LENS IMPLANT [None]
  - PHARMACEUTICAL PRODUCT COMPLAINT [None]
  - THROMBOSIS [None]
  - TOOTH FRACTURE [None]
  - VISUAL ACUITY REDUCED TRANSIENTLY [None]
  - WEIGHT DECREASED [None]
